FAERS Safety Report 24030638 (Version 1)
Quarter: 2024Q2

REPORT INFORMATION
  Report Type: Spontaneous
  Country: BR (occurrence: BR)
  Receive Date: 20240628
  Receipt Date: 20240628
  Transmission Date: 20240716
  Serious: Yes (Hospitalization, Other)
  Sender: FDA-Public Use
  Company Number: BR-SCIEGENP-2024SCLIT00319

PATIENT
  Age: 65 Year
  Sex: Female

DRUGS (2)
  1. LAMOTRIGINE [Suspect]
     Active Substance: LAMOTRIGINE
     Indication: Generalised tonic-clonic seizure
     Route: 065
     Dates: start: 2021, end: 2021
  2. LAMOTRIGINE [Suspect]
     Active Substance: LAMOTRIGINE
     Route: 065
     Dates: start: 2021, end: 2021

REACTIONS (1)
  - Acute generalised exanthematous pustulosis [Recovering/Resolving]
